FAERS Safety Report 10851898 (Version 1)
Quarter: 2015Q1

REPORT INFORMATION
  Report Type: Spontaneous
  Country: US (occurrence: US)
  Receive Date: 20150222
  Receipt Date: 20150222
  Transmission Date: 20150721
  Serious: No
  Sender: FDA-Public Use
  Company Number: US-ALLERGAN-1422809US

PATIENT
  Age: 71 Year
  Sex: Male

DRUGS (3)
  1. BOTOX [Suspect]
     Active Substance: ONABOTULINUMTOXINA
     Indication: HEADACHE
     Dosage: UNK, SINGLE
     Route: 030
     Dates: start: 20140812, end: 20140812
  2. ASPIRIN. [Concomitant]
     Active Substance: ASPIRIN
     Dosage: UNK
     Route: 048
  3. SYNTHROID [Concomitant]
     Active Substance: LEVOTHYROXINE SODIUM
     Dosage: UNK
     Route: 048

REACTIONS (6)
  - Myalgia [Unknown]
  - Off label use [Unknown]
  - Dry mouth [Unknown]
  - Decreased appetite [Unknown]
  - Neuralgia [Unknown]
  - Muscular weakness [Unknown]
